FAERS Safety Report 19318111 (Version 1)
Quarter: 2021Q2

REPORT INFORMATION
  Report Type: Spontaneous
  Country: BR (occurrence: BR)
  Receive Date: 20210527
  Receipt Date: 20210527
  Transmission Date: 20210717
  Serious: Yes (Other)
  Sender: FDA-Public Use
  Company Number: BR-BIOVITRUM-2021BR4841

PATIENT
  Sex: Female

DRUGS (3)
  1. SYNAGIS [Suspect]
     Active Substance: PALIVIZUMAB
     Indication: CARDIOMYOPATHY
     Dosage: UNSPECIFIED DOSE, FIRST DOSE
     Route: 050
  2. SYNAGIS [Suspect]
     Active Substance: PALIVIZUMAB
     Dosage: UNSPECIFIED DOSE, SECOND DOSE
     Route: 050
  3. SYNAGIS [Suspect]
     Active Substance: PALIVIZUMAB
     Dosage: UNSPECIFIED DOSE, THIRD DOSE
     Route: 050

REACTIONS (1)
  - Haematochezia [Recovered/Resolved]
